FAERS Safety Report 18495362 (Version 1)
Quarter: 2020Q4

REPORT INFORMATION
  Report Type: Spontaneous
  Country: IT (occurrence: NL)
  Receive Date: 20201112
  Receipt Date: 20201112
  Transmission Date: 20210114
  Serious: Yes (Hospitalization, Other)
  Sender: FDA-Public Use
  Company Number: NL-SA-2020SA294905

PATIENT

DRUGS (7)
  1. CLOFARABINE. [Suspect]
     Active Substance: CLOFARABINE
     Indication: ACUTE MYELOID LEUKAEMIA
     Dosage: 30 MG/M2 ON DAYS 1-5
     Dates: start: 201709
  2. THIOTEPA. [Concomitant]
     Active Substance: THIOTEPA
     Indication: BONE MARROW CONDITIONING REGIMEN
     Dosage: 5 MG/KG, QD (DAYS -7, -6)
     Route: 065
     Dates: start: 2017
  3. CYTARABINE. [Suspect]
     Active Substance: CYTARABINE
     Indication: ACUTE MYELOID LEUKAEMIA
     Dosage: 2000 MG/M2, DAYS 1-5
     Dates: start: 201709
  4. GRANULOCYTE COLONY STIMULATING FACTOR [Concomitant]
     Active Substance: GRANULOCYTE COLONY-STIMULATING FACTOR NOS
     Indication: ACUTE MYELOID LEUKAEMIA
     Dosage: UNK
     Dates: start: 201709
  5. CYCLOSPORINE. [Suspect]
     Active Substance: CYCLOSPORINE
     Dosage: UNK
     Dates: start: 2017
  6. FLUDARABINE PHOSPHATE. [Suspect]
     Active Substance: FLUDARABINE PHOSPHATE
     Indication: BONE MARROW CONDITIONING REGIMEN
     Dosage: 50 MG/M2, QD (DAYS -5, -4, -3)
     Route: 065
     Dates: start: 2017
  7. BUSULFAN. [Concomitant]
     Active Substance: BUSULFAN
     Indication: BONE MARROW CONDITIONING REGIMEN
     Dosage: 3.2 MG/KG, QD (DAYS -5, -4, -3)
     Route: 065
     Dates: start: 2017

REACTIONS (11)
  - Pneumonia bacterial [Recovered/Resolved]
  - Abdominal pain [Recovered/Resolved]
  - Pseudomonas infection [Recovered/Resolved]
  - Pyrexia [Recovered/Resolved]
  - Cholecystitis acute [Recovered/Resolved]
  - Nocardiosis [Recovered/Resolved]
  - Chest pain [Recovered/Resolved]
  - Lung abscess [Recovered/Resolved]
  - Off label use [Unknown]
  - Septic shock [Recovered/Resolved]
  - Klebsiella infection [Unknown]

NARRATIVE: CASE EVENT DATE: 2017
